FAERS Safety Report 7495445-X (Version None)
Quarter: 2011Q2

REPORT INFORMATION
  Report Type: 
  Country: None (occurrence: None)
  Receive Date: 20110523
  Receipt Date: 20110421
  Transmission Date: 20111010
  Serious: No
  Sender: FDA-Public Use
  Company Number: US-TYCO HEALTHCARE/MALLINCKRODT-T201100911

PATIENT
  Age: 50 Year
  Sex: Male

DRUGS (11)
  1. WELLBUTRIN [Concomitant]
     Dosage: 150 MG, QD
  2. BOOST [Concomitant]
  3. FENTANYL-100 [Suspect]
     Indication: PAIN
     Dosage: 25 UG/HR Q 48 HOURS
     Route: 062
     Dates: start: 20110405, end: 20110505
  4. ZANAFLEX [Concomitant]
     Dosage: UNK, Q12
  5. BENZTRIPINE [Concomitant]
     Dosage: 1 MG, BID
  6. HYTRIN [Concomitant]
     Indication: BLOOD PRESSURE INCREASED
     Dosage: 2 TO 4 MG QHS
  7. LISINOPRIL [Concomitant]
     Dosage: UNK, BID
  8. ALPRAZOLAM [Concomitant]
     Indication: ANXIETY
     Dosage: 0.5 UNK, QD
  9. ZETIA [Concomitant]
     Dosage: 10 MG, QD
  10. GABAPENTIN [Concomitant]
     Dosage: 1/2 PILL TID
  11. ASPIRIN [Concomitant]

REACTIONS (2)
  - DRUG INEFFECTIVE [None]
  - DRUG WITHDRAWAL SYNDROME [None]
